FAERS Safety Report 18604106 (Version 1)
Quarter: 2020Q4

REPORT INFORMATION
  Report Type: Spontaneous
  Country: US (occurrence: US)
  Receive Date: 20201211
  Receipt Date: 20201211
  Transmission Date: 20210114
  Serious: Yes (Hospitalization)
  Sender: FDA-Public Use
  Company Number: None

PATIENT
  Age: 45 Year
  Sex: Male
  Weight: 99 kg

DRUGS (8)
  1. GLIPIZIDE XL 20MG [Concomitant]
  2. LINAGLIPTIN-METFORMIN 5MG-1000MG DAILY [Concomitant]
  3. CARVEDILOL 6.25MG [Concomitant]
     Active Substance: CARVEDILOL
  4. LISINOPRIL. [Concomitant]
     Active Substance: LISINOPRIL
  5. ATORVASTATIN 10MG [Concomitant]
     Active Substance: ATORVASTATIN
  6. MUPIROCIN 2% OINTMENT [Concomitant]
     Active Substance: MUPIROCIN
  7. ASPIRIN 81MG [Concomitant]
     Active Substance: ASPIRIN
  8. BAMLANIVIMAB. [Suspect]
     Active Substance: BAMLANIVIMAB
     Indication: COVID-19
     Dosage: ?          OTHER FREQUENCY:ONCE;?
     Route: 042
     Dates: start: 20201207, end: 20201207

REACTIONS (5)
  - Sepsis [None]
  - Pneumonia [None]
  - Coinfection [None]
  - Dyspnoea exertional [None]
  - Dyspepsia [None]

NARRATIVE: CASE EVENT DATE: 20201209
